FAERS Safety Report 17711020 (Version 1)
Quarter: 2020Q2

REPORT INFORMATION
  Report Type: Spontaneous
  Country: US (occurrence: US)
  Receive Date: 20200427
  Receipt Date: 20200427
  Transmission Date: 20200714
  Serious: No
  Sender: FDA-Public Use
  Company Number: US-PFIZER INC-2020164738

PATIENT
  Age: 60 Year

DRUGS (1)
  1. FENTANYL CITRATE. [Suspect]
     Active Substance: FENTANYL CITRATE
     Dosage: UNK

REACTIONS (4)
  - Abdominal discomfort [Unknown]
  - Drug hypersensitivity [Unknown]
  - Nausea [Unknown]
  - Anxiety [Unknown]
